FAERS Safety Report 9879719 (Version 2)
Quarter: 2014Q1

REPORT INFORMATION
  Report Type: Report from Study
  Country: AU (occurrence: AU)
  Receive Date: 20140206
  Receipt Date: 20140213
  Transmission Date: 20141002
  Serious: Yes (Hospitalization)
  Sender: FDA-Public Use
  Company Number: PHHY2014AU014755

PATIENT
  Sex: Female

DRUGS (1)
  1. CLOZARIL [Suspect]
     Dosage: 200 MG, UNK
     Dates: start: 20001127

REACTIONS (2)
  - Schizoaffective disorder [Unknown]
  - Drug ineffective [Unknown]
